FAERS Safety Report 9728397 (Version 1)
Quarter: 2013Q4

REPORT INFORMATION
  Report Type: Spontaneous
  Country: US (occurrence: None)
  Receive Date: 20131203
  Receipt Date: 20131203
  Transmission Date: 20140711
  Serious: No
  Sender: FDA-Public Use
  Company Number: None

PATIENT
  Age: 47 Year
  Sex: Female
  Weight: 55.8 kg

DRUGS (2)
  1. VELAGLUCERASE ALFA [Suspect]
     Indication: GAUCHER^S DISEASE
     Route: 042
     Dates: start: 20091001
  2. SYNTHYROID [Concomitant]

REACTIONS (3)
  - Pregnancy [None]
  - Abortion spontaneous [None]
  - Exposure during pregnancy [None]
